FAERS Safety Report 25535887 (Version 1)
Quarter: 2025Q3

REPORT INFORMATION
  Report Type: Spontaneous
  Country: US (occurrence: US)
  Receive Date: 20250709
  Receipt Date: 20250709
  Transmission Date: 20251020
  Serious: Yes (Other)
  Sender: BRISTOL-MYERS SQUIBB COMPANY
  Company Number: US-BRISTOL-MYERS SQUIBB COMPANY-2025-096645

PATIENT
  Age: 71 Year
  Sex: Female

DRUGS (1)
  1. POMALYST [Suspect]
     Active Substance: POMALIDOMIDE
     Indication: Pleuritic pain
     Dosage: TAKE 1 CAPSULE (2MG) BY MOUTH DAILY FOR 3 WEEKS ON AND 1 WEEK OFF EVERY 28 DAYS.
     Route: 048

REACTIONS (1)
  - Kidney infection [Recovering/Resolving]

NARRATIVE: CASE EVENT DATE: 20250705
